FAERS Safety Report 8124985-5 (Version None)
Quarter: 2012Q1

REPORT INFORMATION
  Report Type: 
  Country: None (occurrence: None)
  Receive Date: 20120209
  Receipt Date: 20120206
  Transmission Date: 20120608
  Serious: Yes (Other)
  Sender: FDA-Public Use
  Company Number: US-PFIZER INC-2012032719

PATIENT
  Sex: Female
  Weight: 39.9 kg

DRUGS (10)
  1. SIMVASTATIN [Concomitant]
     Indication: BLOOD CHOLESTEROL ABNORMAL
     Dosage: 80 MG, DAILY
  2. ACETYLSALICYLIC ACID [Concomitant]
     Dosage: 325 MG, UNK
  3. LASIX [Concomitant]
     Indication: CARDIAC FAILURE CONGESTIVE
     Dosage: 20 MG, AS NEEDED
  4. KLOR-CON [Concomitant]
     Dosage: 10 MG, UNK
  5. PLAVIX [Concomitant]
     Dosage: 75 MG, DAILY
  6. MORPHINE [Concomitant]
     Dosage: 15 MG, 3X/DAY
  7. METOPROLOL [Concomitant]
     Dosage: 50 MG, 2X/DAY
  8. PROMETHAZINE [Concomitant]
     Dosage: 25 MG, AS NEEDED
  9. PREVACID [Concomitant]
     Dosage: UNK, 4X/DAY
  10. NEURONTIN [Suspect]
     Indication: NERVE INJURY
     Dosage: 400 MG, 4X/DAY
     Dates: start: 19940101, end: 20120205

REACTIONS (1)
  - ADDISON'S DISEASE [None]
